FAERS Safety Report 5903455-6 (Version None)
Quarter: 2008Q3

REPORT INFORMATION
  Report Type: 
  Country: None (occurrence: None)
  Receive Date: 20080930
  Receipt Date: 20080922
  Transmission Date: 20090109
  Serious: Yes (Other)
  Sender: FDA-Public Use
  Company Number: US-PURDUE-USA_2008_0032509

PATIENT
  Age: 25 Year
  Sex: Male

DRUGS (1)
  1. OXYCONTIN [Suspect]
     Indication: PAIN
     Dosage: UNK MG, UNK
     Route: 048

REACTIONS (2)
  - AGGRESSION [None]
  - DRUG DEPENDENCE [None]
